FAERS Safety Report 7391854-8 (Version None)
Quarter: 2011Q2

REPORT INFORMATION
  Report Type: 
  Country: None (occurrence: None)
  Receive Date: 20110404
  Receipt Date: 20110324
  Transmission Date: 20111010
  Serious: Yes (Other)
  Sender: FDA-Public Use
  Company Number: JP-ROCHE-768346

PATIENT
  Age: 74 Year
  Sex: Male

DRUGS (1)
  1. RIVOTRIL [Suspect]
     Dosage: DOSAGE WAS UNCERTAIN.
     Route: 048
     Dates: start: 20100201, end: 20100201

REACTIONS (1)
  - LIVER DISORDER [None]
